FAERS Safety Report 6609387-2 (Version None)
Quarter: 2010Q1

REPORT INFORMATION
  Report Type: 
  Country: None (occurrence: None)
  Receive Date: 20100302
  Receipt Date: 20100223
  Transmission Date: 20100710
  Serious: Yes (Life-Threatening, Hospitalization)
  Sender: FDA-Public Use
  Company Number: GB-TEVA-225696ISR

PATIENT
  Age: 74 Year
  Sex: Female

DRUGS (3)
  1. CODEINE SULFATE [Suspect]
     Indication: PAIN
     Route: 048
     Dates: start: 20100205
  2. PARACETAMOL [Suspect]
     Indication: PAIN
     Route: 048
     Dates: end: 20100209
  3. ACENOCOUMAROL (SINTHROME) [Suspect]
     Indication: ATRIAL FIBRILLATION
     Route: 048

REACTIONS (2)
  - DRUG INTERACTION [None]
  - INTERNATIONAL NORMALISED RATIO INCREASED [None]
